FAERS Safety Report 19053683 (Version 3)
Quarter: 2021Q2

REPORT INFORMATION
  Report Type: Spontaneous
  Country: US (occurrence: US)
  Receive Date: 20210324
  Receipt Date: 20210603
  Transmission Date: 20210717
  Serious: Yes (Other)
  Sender: FDA-Public Use
  Company Number: US-009507513-2103USA005092

PATIENT
  Age: 41 Year
  Sex: Male
  Weight: 88.89 kg

DRUGS (24)
  1. INCRUSE ELLIPTA [Suspect]
     Active Substance: UMECLIDINIUM BROMIDE
     Dosage: 1 PUFF DAILY
  2. SUBOXONE [Suspect]
     Active Substance: BUPRENORPHINE HYDROCHLORIDE\NALOXONE HYDROCHLORIDE
     Dosage: PLACE 1 FILM  UNDER TONGUE IN THE MORNING, HALF?FILM IN THE AFTERNOON, AND 1 FILM AT NIGHT MAX DAILY
  3. PROTONIX [Suspect]
     Active Substance: PANTOPRAZOLE SODIUM
     Dosage: 40 MILLIGRAM, QD
     Route: 048
  4. VENTOLIN HFA [Suspect]
     Active Substance: ALBUTEROL SULFATE
     Indication: WHEEZING
     Dosage: 1?2 PUFFS INTO THE LUNGS EVERY 4 HOURS AS NEEDED
  5. NICORETTE [Suspect]
     Active Substance: NICOTINE
     Dosage: 4 MILLIGRAM, AS NEEDED
  6. EFFEXOR [Suspect]
     Active Substance: VENLAFAXINE HYDROCHLORIDE
     Dosage: 1 CAPSULE
     Route: 048
  7. ATROVENT [Suspect]
     Active Substance: IPRATROPIUM BROMIDE
     Dosage: 500 MCG 4 TIMES DAILY
  8. SIVEXTRO [Suspect]
     Active Substance: TEDIZOLID PHOSPHATE
     Dosage: 200 MILLIGRAM, DAILY
     Route: 048
     Dates: start: 20210303
  9. BREO ELLIPTA [Suspect]
     Active Substance: FLUTICASONE FUROATE\VILANTEROL TRIFENATATE
     Dosage: 1 PUFF DAILY
  10. FASENRA [Suspect]
     Active Substance: BENRALIZUMAB
     Dosage: 1 MILLILITER 30 MG, EVERY28 DAYS
  11. SODIUM CHLORIDE. [Suspect]
     Active Substance: SODIUM CHLORIDE
     Dosage: 10 MILLILITER, AS NEEDED
  12. MULTIVITAMINUM [Suspect]
     Active Substance: VITAMINS
     Dosage: 1 DOSAGE FORM, QD
     Route: 048
  13. SIVEXTRO [Suspect]
     Active Substance: TEDIZOLID PHOSPHATE
     Dosage: UNK
     Route: 048
     Dates: start: 20210324
  14. BUSPAR [Suspect]
     Active Substance: BUSPIRONE HYDROCHLORIDE
     Dosage: 20 MILLIGRAM, THREE TIMES DAILY
     Route: 048
  15. ATARAX [Suspect]
     Active Substance: HYDROXYZINE HYDROCHLORIDE
     Dosage: 100 MILLIGRAM, THREE A DAY
     Route: 048
  16. SPIRIVA [Suspect]
     Active Substance: TIOTROPIUM BROMIDE MONOHYDRATE
     Dosage: 18 MICROGRAM, ONCE A DAY
  17. MINIPRESS [Suspect]
     Active Substance: PRAZOSIN HYDROCHLORIDE
     Dosage: 2 MILLIGRAM, EVERY EVENING
     Route: 048
  18. PEPCID [Suspect]
     Active Substance: FAMOTIDINE
     Dosage: 20 MILLIGRAM, QD
     Route: 048
  19. GLYCOLAX [Suspect]
     Active Substance: POLYETHYLENE GLYCOL 3350
     Dosage: 17 GRAM, DAILY
     Route: 048
  20. CHANTIX [Suspect]
     Active Substance: VARENICLINE TARTRATE
     Dosage: AS NEEDED
  21. NEURONTIN [Suspect]
     Active Substance: GABAPENTIN
     Dosage: 300 MILLIGRAM, THREE A DAY
     Route: 048
  22. PROVENTIL [Suspect]
     Active Substance: ALBUTEROL
     Indication: WHEEZING
     Dosage: 3 MILLILITER, 4 TIMES DAILY AS NEEDED
     Route: 055
  23. SINGULAIR [Suspect]
     Active Substance: MONTELUKAST SODIUM
     Dosage: 10 MILLIGRAM, NIGHTLY
     Route: 048
  24. HEPARIN LOCK FLUSH [Suspect]
     Active Substance: HEPARIN SODIUM
     Dosage: 5 MILLILITER AS DIRECTED
     Route: 042

REACTIONS (6)
  - Pulmonary nocardiosis [Not Recovered/Not Resolved]
  - Dyspepsia [Not Recovered/Not Resolved]
  - Product dose omission issue [Unknown]
  - Headache [Unknown]
  - Abdominal discomfort [Unknown]
  - Appetite disorder [Unknown]

NARRATIVE: CASE EVENT DATE: 20210312
